FAERS Safety Report 6702659-2 (Version None)
Quarter: 2010Q2

REPORT INFORMATION
  Report Type: 
  Country: None (occurrence: None)
  Receive Date: 20100429
  Receipt Date: 20100421
  Transmission Date: 20101027
  Serious: Yes (Other)
  Sender: FDA-Public Use
  Company Number: US-ASTRAZENECA-2010SE17721

PATIENT
  Age: 56 Year
  Sex: Female

DRUGS (4)
  1. ARIMIDEX [Suspect]
     Indication: BREAST CANCER
     Route: 048
     Dates: start: 20000101
  2. TAMOXIFEN CITRATE [Suspect]
     Indication: BREAST CANCER
  3. ASPIRIN [Concomitant]
  4. VITAMIN E [Concomitant]

REACTIONS (4)
  - BONE DENSITY DECREASED [None]
  - HOT FLUSH [None]
  - LYMPHOMA [None]
  - WEIGHT INCREASED [None]
